FAERS Safety Report 8264870-1 (Version None)
Quarter: 2012Q2

REPORT INFORMATION
  Report Type: 
  Country: None (occurrence: None)
  Receive Date: 20120406
  Receipt Date: 20120326
  Transmission Date: 20120825
  Serious: Yes (Other)
  Sender: FDA-Public Use
  Company Number: US-ELI_LILLY_AND_COMPANY-US201203007970

PATIENT
  Age: 60 Year
  Sex: Female

DRUGS (2)
  1. CYMBALTA [Suspect]
     Indication: PAIN
     Dosage: UNK, UNKNOWN
     Dates: start: 20111001
  2. VITAMIN TAB [Concomitant]
     Dosage: UNK, UNKNOWN

REACTIONS (3)
  - FALL [None]
  - SPINAL FRACTURE [None]
  - MULTIPLE SCLEROSIS [None]
